FAERS Safety Report 21250426 (Version 1)
Quarter: 2022Q3

REPORT INFORMATION
  Report Type: Report from Study
  Country: US (occurrence: US)
  Receive Date: 20220824
  Receipt Date: 20220824
  Transmission Date: 20221027
  Serious: Yes (Hospitalization, Other)
  Sender: FDA-Public Use
  Company Number: US-ABBVIE-22K-163-4466359-00

PATIENT
  Age: 58 Year
  Sex: Male
  Weight: 109.87 kg

DRUGS (6)
  1. HUMIRA [Suspect]
     Active Substance: ADALIMUMAB
     Indication: Product used for unknown indication
     Dosage: CITRATE FREE
     Route: 058
     Dates: start: 201901, end: 20220624
  2. HUMIRA [Suspect]
     Active Substance: ADALIMUMAB
     Route: 058
     Dates: start: 20220715
  3. PFIZER-BIONTECH COVID-19 VACCINE [Concomitant]
     Active Substance: TOZINAMERAN
     Indication: COVID-19 immunisation
     Dosage: FIRST DOSE
     Route: 030
     Dates: start: 20210318, end: 20210318
  4. PFIZER-BIONTECH COVID-19 VACCINE [Concomitant]
     Active Substance: TOZINAMERAN
     Dosage: SECOND DOSE
     Route: 030
     Dates: start: 20210413, end: 20210413
  5. PFIZER-BIONTECH COVID-19 VACCINE [Concomitant]
     Active Substance: TOZINAMERAN
     Dosage: BOOSTER DOSE
     Route: 030
     Dates: start: 20210817, end: 20210817
  6. PFIZER-BIONTECH COVID-19 VACCINE [Concomitant]
     Active Substance: TOZINAMERAN
     Dosage: SECOND BOOSTER DOSE
     Route: 030
     Dates: start: 20220407, end: 20220407

REACTIONS (14)
  - Blepharoplasty [Recovered/Resolved]
  - Chronic kidney disease [Recovering/Resolving]
  - Heart rate irregular [Recovered/Resolved]
  - Pleural effusion [Unknown]
  - Intra-abdominal fluid collection [Unknown]
  - Cardiac disorder [Unknown]
  - Off label use [Not Recovered/Not Resolved]
  - Weight decreased [Unknown]
  - Abdominal distension [Recovered/Resolved]
  - Diabetes mellitus [Unknown]
  - Renal impairment [Unknown]
  - Atrial fibrillation [Unknown]
  - Oedema peripheral [Unknown]
  - Peripheral swelling [Recovered/Resolved]

NARRATIVE: CASE EVENT DATE: 20190101
